FAERS Safety Report 5137740-5 (Version None)
Quarter: 2006Q4

REPORT INFORMATION
  Report Type: 
  Country: None (occurrence: None)
  Receive Date: 20061030
  Receipt Date: 20051230
  Transmission Date: 20070319
  Serious: No
  Sender: FDA-Public Use
  Company Number: US-GLAXOSMITHKLINE-A0587333A

PATIENT
  Age: 48 Year
  Sex: Female

DRUGS (4)
  1. ADVAIR HFA [Suspect]
     Indication: CHRONIC OBSTRUCTIVE PULMONARY DISEASE
     Dosage: 1PUFF PER DAY
     Route: 055
  2. SINGULAIR [Concomitant]
  3. ZYRTEC-D [Concomitant]
  4. NAPROXEN [Concomitant]

REACTIONS (1)
  - HAEMOGLOBIN DECREASED [None]
